FAERS Safety Report 8245391-9 (Version None)
Quarter: 2012Q1

REPORT INFORMATION
  Report Type: 
  Country: None (occurrence: None)
  Receive Date: 20120329
  Receipt Date: 20120319
  Transmission Date: 20120608
  Serious: Yes (Hospitalization)
  Sender: FDA-Public Use
  Company Number: PHHY2012CH026586

PATIENT
  Sex: Female

DRUGS (12)
  1. CLOZAPINE [Interacting]
     Dosage: 100 MG, UNK
  2. THIOPENTAL SODIUM [Suspect]
     Dosage: UNK UKN, UNK
  3. METHADONE HCL [Interacting]
     Dosage: UNK UKN, UNK
  4. CLOZAPINE [Interacting]
     Dosage: 100 MG, BID
     Dates: start: 20120316
  5. PROPOFOL [Interacting]
     Dosage: UNK UKN, UNK
  6. FENTANYL [Interacting]
     Dosage: UNK UKN, UNK
  7. PHENYLEPHRINE HCL [Suspect]
     Dosage: UNK UKN, UNK
  8. CLOZAPINE [Interacting]
     Dosage: 350 MG, UNK
  9. EPHEDRINE [Suspect]
     Dosage: UNK UKN, UNK
  10. LIDOCAINE [Interacting]
     Dosage: UNK UKN, UNK
  11. TACRINE [Suspect]
     Dosage: UNK UKN, UNK
  12. TRADRIUM [Suspect]
     Dosage: UNK UKN, UNK

REACTIONS (8)
  - ENDOMETRIAL CANCER [None]
  - ABDOMINAL ABSCESS [None]
  - AGGRESSION [None]
  - DRUG INTERACTION [None]
  - ANTIPSYCHOTIC DRUG LEVEL INCREASED [None]
  - OVERDOSE [None]
  - SOMNOLENCE [None]
  - URINARY TRACT INFECTION [None]
